FAERS Safety Report 7896422-7 (Version None)
Quarter: 2011Q4

REPORT INFORMATION
  Report Type: 
  Country: None (occurrence: None)
  Receive Date: 20111106
  Receipt Date: 20110909
  Transmission Date: 20120403
  Serious: No
  Sender: FDA-Public Use
  Company Number: US-AMGEN-USASP2011034826

PATIENT
  Age: 71 Year
  Sex: Female
  Weight: 102 kg

DRUGS (5)
  1. ENBREL [Suspect]
     Indication: RHEUMATOID ARTHRITIS
     Dosage: UNK
     Dates: start: 20110518
  2. ENBREL [Suspect]
     Dosage: 50 MG, QWK
     Dates: start: 20110601
  3. BENADRYL [Concomitant]
     Dosage: UNK
     Dates: start: 20110629
  4. METHOTREXATE [Concomitant]
     Dosage: 2.5 MG, UNK
     Dates: start: 20110518, end: 20110525
  5. TAC [Concomitant]
     Dosage: UNK
     Dates: start: 20110629

REACTIONS (9)
  - DERMATITIS CONTACT [None]
  - MUSCULOSKELETAL STIFFNESS [None]
  - INJECTION SITE ERYTHEMA [None]
  - INJECTION SITE INDURATION [None]
  - INJECTION SITE REACTION [None]
  - INJECTION SITE RASH [None]
  - INJECTION SITE PRURITUS [None]
  - INJECTION SITE SWELLING [None]
  - INJECTION SITE DISCOLOURATION [None]
